FAERS Safety Report 21287415 (Version 1)
Quarter: 2022Q3

REPORT INFORMATION
  Report Type: Spontaneous
  Country: US (occurrence: US)
  Receive Date: 20220902
  Receipt Date: 20220902
  Transmission Date: 20221026
  Serious: No
  Sender: FDA-Public Use
  Company Number: US-ABBVIE-22K-163-4414214-00

PATIENT

DRUGS (1)
  1. CREON [Suspect]
     Active Substance: PANCRELIPASE AMYLASE\PANCRELIPASE LIPASE\PANCRELIPASE PROTEASE
     Indication: Product used for unknown indication
     Dosage: WITH FOOD AND PLENTY OF WATER
     Route: 048

REACTIONS (3)
  - Tongue ulceration [Unknown]
  - Glossodynia [Unknown]
  - Glossitis [Unknown]

NARRATIVE: CASE EVENT DATE: 20220401
